FAERS Safety Report 8528895-0 (Version None)
Quarter: 2012Q3

REPORT INFORMATION
  Report Type: 
  Country: None (occurrence: None)
  Receive Date: 20120723
  Receipt Date: 20120717
  Transmission Date: 20120928
  Serious: No
  Sender: FDA-Public Use
  Company Number: US-PFIZER INC-2012172498

PATIENT
  Sex: Female
  Weight: 102.49 kg

DRUGS (3)
  1. BYSTOLIC [Concomitant]
     Indication: HYPERTENSION
     Dosage: UNK
  2. LYRICA [Suspect]
     Indication: FIBROMYALGIA
     Dosage: 50 MG, 3X/DAY
     Route: 048
     Dates: start: 20110101
  3. METFORMIN [Concomitant]
     Dosage: UNK

REACTIONS (2)
  - VITAMIN D DECREASED [None]
  - MEMORY IMPAIRMENT [None]
